FAERS Safety Report 6886759-2 (Version None)
Quarter: 2010Q3

REPORT INFORMATION
  Report Type: 
  Country: None (occurrence: None)
  Receive Date: 20100729
  Receipt Date: 20100729
  Transmission Date: 20110219
  Serious: Yes (Other)
  Sender: FDA-Public Use
  Company Number: None

PATIENT
  Sex: Male
  Weight: 143.7903 kg

DRUGS (1)
  1. DIVALPROEX ER 500MG NOT AVAILABLE [Suspect]
     Indication: MIGRAINE
     Dosage: 500MG 3 QD ORAL
     Route: 048
     Dates: start: 20081014, end: 20100414

REACTIONS (1)
  - HEADACHE [None]
